FAERS Safety Report 7757116-1 (Version None)
Quarter: 2011Q3

REPORT INFORMATION
  Report Type: 
  Country: None (occurrence: None)
  Receive Date: 20110916
  Receipt Date: 20110909
  Transmission Date: 20111222
  Serious: Yes (Hospitalization)
  Sender: FDA-Public Use
  Company Number: US-MERCK-1106USA02201

PATIENT
  Age: 60 Year
  Sex: Female

DRUGS (3)
  1. NAPROSYN [Concomitant]
     Route: 065
  2. PREMPRO [Concomitant]
     Route: 065
  3. FOSAMAX [Suspect]
     Indication: PREMATURE MENOPAUSE
     Route: 048
     Dates: start: 19940101, end: 20110612

REACTIONS (2)
  - ARTHRALGIA [None]
  - FEMUR FRACTURE [None]
